FAERS Safety Report 24637580 (Version 1)
Quarter: 2024Q4

REPORT INFORMATION
  Report Type: Spontaneous
  Country: US (occurrence: US)
  Receive Date: 20241119
  Receipt Date: 20241119
  Transmission Date: 20250114
  Serious: No
  Sender: SEPTODONT
  Company Number: US-SEPTODONT-2024018745

PATIENT
  Age: 26 Year
  Sex: Female

DRUGS (2)
  1. ARTICAINE HYDROCHLORIDE\EPINEPHRINE BITARTRATE [Suspect]
     Active Substance: ARTICAINE HYDROCHLORIDE\EPINEPHRINE BITARTRATE
     Indication: Dental local anaesthesia
     Dosage: 3-4 CARPULES
     Route: 065
     Dates: start: 20240610, end: 20240610
  2. CITANEST PLAIN [Concomitant]
     Active Substance: PRILOCAINE HYDROCHLORIDE
     Indication: Dental local anaesthesia
     Route: 065
     Dates: start: 20240610, end: 20240610

REACTIONS (2)
  - Drug ineffective [Unknown]
  - No adverse event [Unknown]

NARRATIVE: CASE EVENT DATE: 20240610
